FAERS Safety Report 5086890-0 (Version None)
Quarter: 2006Q3

REPORT INFORMATION
  Report Type: 
  Country: None (occurrence: None)
  Receive Date: 20060818
  Receipt Date: 20060804
  Transmission Date: 20061208
  Serious: Yes (Hospitalization, Other)
  Sender: FDA-Public Use
  Company Number: 163-C5013-05060130

PATIENT
  Age: 74 Year
  Sex: Female
  Weight: 57.2 kg

DRUGS (6)
  1. REVLIMID [Suspect]
     Indication: MULTIPLE MYELOMA
     Dosage: 25 MG, QD ON DAYS 1-21, Q28D, ORAL
     Route: 048
     Dates: start: 20050511, end: 20050524
  2. DEXAMETHASONE TAB [Suspect]
     Indication: MULTIPLE MYELOMA
     Dosage: 40 MG, QD ON DAYS 1-4, 9-12, 17-20, Q28D, ORAL
     Route: 048
     Dates: start: 20050511, end: 20050522
  3. COUAMDIN [Concomitant]
  4. LISINOPRIL [Concomitant]
  5. TOPROL-XL [Concomitant]
  6. MAXZIDE [Concomitant]

REACTIONS (6)
  - ATRIAL FIBRILLATION [None]
  - FEELING HOT [None]
  - HYPONATRAEMIA [None]
  - LOSS OF CONSCIOUSNESS [None]
  - OEDEMA PERIPHERAL [None]
  - TROPONIN INCREASED [None]
